FAERS Safety Report 10012258 (Version 1)
Quarter: 2014Q1

REPORT INFORMATION
  Report Type: Spontaneous
  Country: US (occurrence: US)
  Receive Date: 20140314
  Receipt Date: 20140314
  Transmission Date: 20141002
  Serious: Yes (Hospitalization, Other)
  Sender: FDA-Public Use
  Company Number: 2014SP001298

PATIENT
  Age: 61 Year
  Sex: Female

DRUGS (5)
  1. DEXAMETHASONE [Suspect]
     Indication: ACUTE LYMPHOCYTIC LEUKAEMIA
     Route: 042
  2. MESNA [Suspect]
     Indication: ACUTE LYMPHOCYTIC LEUKAEMIA
  3. CYCLOPHOSPHAMIDE [Suspect]
     Indication: ACUTE LYMPHOCYTIC LEUKAEMIA
     Route: 042
  4. VINCRISTINE [Suspect]
     Indication: ACUTE LYMPHOCYTIC LEUKAEMIA
     Route: 042
  5. RITUXIMAB [Suspect]
     Indication: ACUTE LYMPHOCYTIC LEUKAEMIA
     Route: 042

REACTIONS (1)
  - Abdominal pain [Recovered/Resolved]
